FAERS Safety Report 5161382-9 (Version None)
Quarter: 2006Q4

REPORT INFORMATION
  Report Type: 
  Country: None (occurrence: None)
  Receive Date: 20061121
  Receipt Date: 20061110
  Transmission Date: 20070319
  Serious: Yes (Hospitalization)
  Sender: FDA-Public Use
  Company Number: E2090-00040-SPO-JP

PATIENT
  Age: 76 Year
  Sex: Female

DRUGS (17)
  1. ZONISAMIDE [Suspect]
     Indication: EPILEPSY
     Dosage: 200 MG, ORAL; 10 MG, ORAL; 40 MG, ORAL; 200 MG, ORAL; 200 MG, ORAL
     Route: 048
     Dates: end: 20060703
  2. ZONISAMIDE [Suspect]
     Indication: EPILEPSY
     Dosage: 200 MG, ORAL; 10 MG, ORAL; 40 MG, ORAL; 200 MG, ORAL; 200 MG, ORAL
     Route: 048
     Dates: start: 20061015, end: 20061015
  3. ZONISAMIDE [Suspect]
     Indication: EPILEPSY
     Dosage: 200 MG, ORAL; 10 MG, ORAL; 40 MG, ORAL; 200 MG, ORAL; 200 MG, ORAL
     Route: 048
     Dates: start: 20061016, end: 20061016
  4. ZONISAMIDE [Suspect]
     Indication: EPILEPSY
     Dosage: 200 MG, ORAL; 10 MG, ORAL; 40 MG, ORAL; 200 MG, ORAL; 200 MG, ORAL
     Route: 048
     Dates: start: 20061017, end: 20061017
  5. ZONISAMIDE [Suspect]
     Indication: EPILEPSY
     Dosage: 200 MG, ORAL; 10 MG, ORAL; 40 MG, ORAL; 200 MG, ORAL; 200 MG, ORAL
     Route: 048
     Dates: start: 20061018
  6. ZONISAMIDE [Suspect]
     Indication: EPILEPSY
     Dosage: 200 MG, ORAL; 10 MG, ORAL; 40 MG, ORAL; 200 MG, ORAL; 200 MG, ORAL
     Route: 048
     Dates: start: 20061101
  7. CLONAZEPAM [Suspect]
     Indication: EPILEPSY
     Dosage: 0.5 MG, ORAL
     Route: 048
     Dates: end: 20060703
  8. GASMOTIN (MOSAPRIDE CITRATE) [Suspect]
     Indication: DYSPEPSIA
     Dosage: 10 MG, ORAL
     Route: 048
  9. ALESION (EPINASTINE HYDROCHLORIDE) [Concomitant]
  10. DEPAKENE [Concomitant]
  11. PAJALDINE (TICLOPIDINE HYDROCHLORIDE) [Concomitant]
  12. PRAVASTATIN [Concomitant]
  13. MUCOSTA (REBAMIPIDE) [Concomitant]
  14. BIOFERMIN (LACTOBACILLUS SPOROGENES) [Concomitant]
  15. GRANDAXIN (TOFISOPAM) [Concomitant]
  16. POLITOSE (POLITOSE) [Concomitant]
  17. PURSENNID (SENNA LEAF) [Concomitant]

REACTIONS (6)
  - CONDITION AGGRAVATED [None]
  - CONVULSION [None]
  - DRUG ERUPTION [None]
  - ERYTHEMA [None]
  - RASH PUSTULAR [None]
  - TOXIC SKIN ERUPTION [None]
